FAERS Safety Report 15121572 (Version 2)
Quarter: 2018Q3

REPORT INFORMATION
  Report Type: Report from Study
  Country: DE (occurrence: DE)
  Receive Date: 20180709
  Receipt Date: 20180727
  Transmission Date: 20181010
  Serious: Yes (Hospitalization)
  Sender: FDA-Public Use
  Company Number: DE-JNJFOC-20180708732

PATIENT
  Age: 71 Year
  Sex: Male

DRUGS (6)
  1. NEBIVOLOL. [Concomitant]
     Active Substance: NEBIVOLOL
     Route: 065
  2. AMIODARONE [Concomitant]
     Active Substance: AMIODARONE
     Route: 065
     Dates: start: 201802
  3. CANDESARTAN. [Concomitant]
     Active Substance: CANDESARTAN
     Route: 065
  4. XARELTO [Suspect]
     Active Substance: RIVAROXABAN
     Indication: PRODUCT USED FOR UNKNOWN INDICATION
     Route: 048
  5. BUDIAIR [Concomitant]
     Active Substance: BUDESONIDE
     Route: 065
  6. SIMVASTATIN. [Concomitant]
     Active Substance: SIMVASTATIN
     Route: 065

REACTIONS (2)
  - Basal ganglia haemorrhage [Unknown]
  - Cerebral ventricular rupture [Unknown]

NARRATIVE: CASE EVENT DATE: 20180627
